FAERS Safety Report 14575439 (Version 1)
Quarter: 2018Q1

REPORT INFORMATION
  Report Type: Spontaneous
  Country: US (occurrence: US)
  Receive Date: 20180227
  Receipt Date: 20180227
  Transmission Date: 20180509
  Serious: No
  Sender: FDA-Public Use
  Company Number: US-ROCHE-2016184

PATIENT
  Sex: Female

DRUGS (1)
  1. XOLAIR [Suspect]
     Active Substance: OMALIZUMAB
     Indication: IDIOPATHIC URTICARIA
     Dosage: STRENGTH:150MG, ONGOING
     Route: 058
     Dates: start: 20170810

REACTIONS (2)
  - Urticaria [Recovered/Resolved]
  - Muscle spasms [Unknown]
